FAERS Safety Report 4495984-X (Version None)
Quarter: 2004Q4

REPORT INFORMATION
  Report Type: 
  Country: None (occurrence: None)
  Receive Date: 20041108
  Receipt Date: 20040903
  Transmission Date: 20050328
  Serious: Yes (Other)
  Sender: FDA-Public Use
  Company Number: PHRM2004FR02728

PATIENT
  Age: 78 Year
  Sex: Male
  Weight: 60 kg

DRUGS (3)
  1. TAREG [Suspect]
     Indication: HYPERTENSION
     Dosage: 160 MG DAILY
     Route: 048
  2. CELLCEPT [Concomitant]
     Indication: LIVER TRANSPLANT
  3. NEORAL [Concomitant]
     Indication: LIVER TRANSPLANT

REACTIONS (3)
  - ANAEMIA [None]
  - GASTROINTESTINAL DISORDER [None]
  - HAEMOGLOBIN DECREASED [None]
